FAERS Safety Report 23143397 (Version 1)
Quarter: 2023Q4

REPORT INFORMATION
  Report Type: Spontaneous
  Country: VE (occurrence: None)
  Receive Date: 20231103
  Receipt Date: 20231103
  Transmission Date: 20240110
  Serious: Yes (Other)
  Sender: FDA-Public Use
  Company Number: VE-ROCHE-3450858

PATIENT

DRUGS (7)
  1. PERTUZUMAB [Suspect]
     Active Substance: PERTUZUMAB
     Indication: Product used for unknown indication
     Route: 065
     Dates: start: 202104
  2. TRASTUZUMAB [Suspect]
     Active Substance: TRASTUZUMAB
     Indication: Product used for unknown indication
     Route: 065
     Dates: start: 202104
  3. CAPECITABINE [Suspect]
     Active Substance: CAPECITABINE
     Indication: Product used for unknown indication
     Route: 048
     Dates: start: 201911
  4. GEMCITABINE [Concomitant]
     Active Substance: GEMCITABINE
     Dates: start: 202002
  5. DOCETAXEL [Concomitant]
     Active Substance: DOCETAXEL\DOCETAXEL ANHYDROUS
     Dates: start: 202104
  6. CARVEDILOL [Concomitant]
     Active Substance: CARVEDILOL
  7. PROPAFENONE [Concomitant]
     Active Substance: PROPAFENONE

REACTIONS (3)
  - Neutropenia [Unknown]
  - Nodule [Unknown]
  - Supraventricular tachycardia [Unknown]
